FAERS Safety Report 19006092 (Version 4)
Quarter: 2021Q2

REPORT INFORMATION
  Report Type: Report from Study
  Country: None (occurrence: CA)
  Receive Date: 20210314
  Receipt Date: 20210510
  Transmission Date: 20210717
  Serious: Yes (Hospitalization, Other)
  Sender: FDA-Public Use
  Company Number: CA-ABBVIE-21K-028-3807591-00

PATIENT
  Age: 35 Year
  Sex: Female

DRUGS (7)
  1. PENTASA [Concomitant]
     Active Substance: MESALAMINE
     Indication: PRODUCT USED FOR UNKNOWN INDICATION
     Route: 065
     Dates: start: 201806
  2. DELTAZEN [Concomitant]
     Indication: ANAL FISSURE
     Dosage: APPLIED
     Route: 065
     Dates: start: 20210302
  3. RIZATRIPTAN. [Concomitant]
     Active Substance: RIZATRIPTAN
     Indication: ATTENTION DEFICIT HYPERACTIVITY DISORDER
     Route: 065
  4. HUMIRA [Suspect]
     Active Substance: ADALIMUMAB
     Route: 058
     Dates: start: 2021
  5. HUMIRA [Suspect]
     Active Substance: ADALIMUMAB
     Indication: CROHN^S DISEASE
     Route: 058
     Dates: start: 20201231, end: 202103
  6. MELATONIN [Concomitant]
     Active Substance: MELATONIN
     Indication: SLEEP DISORDER
     Route: 065
  7. ENTOCORT [Concomitant]
     Active Substance: BUDESONIDE
     Indication: CROHN^S DISEASE
     Route: 048
     Dates: start: 201806

REACTIONS (22)
  - Multiple sclerosis [Unknown]
  - Blindness unilateral [Unknown]
  - Dizziness [Not Recovered/Not Resolved]
  - Diplopia [Not Recovered/Not Resolved]
  - Musculoskeletal disorder [Unknown]
  - Therapeutic product effect decreased [Unknown]
  - Paraparesis [Unknown]
  - Ophthalmoplegia [Unknown]
  - Cough [Unknown]
  - Visual impairment [Unknown]
  - Nystagmus [Unknown]
  - Paraesthesia [Unknown]
  - Diplopia [Unknown]
  - Vertigo [Not Recovered/Not Resolved]
  - Diarrhoea [Unknown]
  - Haemorrhage [Unknown]
  - Intention tremor [Unknown]
  - Muscle spasticity [Unknown]
  - Nausea [Not Recovered/Not Resolved]
  - Dysarthria [Unknown]
  - Syncope [Unknown]
  - Gait disturbance [Unknown]

NARRATIVE: CASE EVENT DATE: 20210316
